FAERS Safety Report 18822543 (Version 1)
Quarter: 2021Q1

REPORT INFORMATION
  Report Type: Spontaneous
  Country: CN (occurrence: CN)
  Receive Date: 20210202
  Receipt Date: 20210202
  Transmission Date: 20210419
  Serious: Yes (Life-Threatening, Hospitalization)
  Sender: FDA-Public Use
  Company Number: CN-AZURITY PHARMACEUTICALS, INC.-2021AZY00005

PATIENT
  Age: 74 Year
  Sex: Male
  Weight: 67 kg

DRUGS (1)
  1. VANCOMYCIN HYDROCHLORIDE. [Suspect]
     Active Substance: VANCOMYCIN HYDROCHLORIDE
     Indication: PROPHYLAXIS
     Dosage: 0.5 G MIXED WITH BONE DEBRIS INTO THE CAGE AND 0.5 G SPRAYING ON THE DURA MATER AND INTO THE MASCULA
     Route: 061

REACTIONS (3)
  - Circulatory collapse [Recovered/Resolved]
  - Anaphylactic reaction [Recovered/Resolved]
  - Haemorrhage intracranial [Recovered/Resolved]
